FAERS Safety Report 19727282 (Version 1)
Quarter: 2021Q3

REPORT INFORMATION
  Report Type: Spontaneous
  Country: CA (occurrence: CA)
  Receive Date: 20210819
  Receipt Date: 20210819
  Transmission Date: 20211014
  Serious: Yes (Other)
  Sender: FDA-Public Use
  Company Number: CA-BEH-2021134965

PATIENT
  Age: 7 Year
  Sex: Male
  Weight: 24 kg

DRUGS (2)
  1. PRIVIGEN [Suspect]
     Active Substance: HUMAN IMMUNOGLOBULIN G
     Indication: KAWASAKI^S DISEASE
     Dosage: 50 GRAM, 1 EVERY 1 DAY
     Route: 042
  2. GAMUNEX [Suspect]
     Active Substance: HUMAN IMMUNOGLOBULIN G
     Indication: KAWASAKI^S DISEASE
     Dosage: 24 MILLIGRAM, 1 EVERY 1 DAYS
     Route: 042

REACTIONS (7)
  - Fatigue [Unknown]
  - Low density lipoprotein increased [Unknown]
  - Coombs positive haemolytic anaemia [Unknown]
  - Dizziness [Unknown]
  - Haemoglobin decreased [Unknown]
  - Haemolysis [Unknown]
  - Haemolytic anaemia [Unknown]
